FAERS Safety Report 9644729 (Version 1)
Quarter: 2013Q4

REPORT INFORMATION
  Report Type: Report from Study
  Country: MX (occurrence: MX)
  Receive Date: 20131025
  Receipt Date: 20131025
  Transmission Date: 20140711
  Serious: Yes (Death)
  Sender: FDA-Public Use
  Company Number: PHHY2013MX120385

PATIENT
  Age: 74 Year
  Sex: Male

DRUGS (1)
  1. CO-DIOVAN [Suspect]
     Dosage: (160 VALS AND 12.5 HYDR) (UNIT UNSPECIFIED)
     Route: 048

REACTIONS (1)
  - Death [Fatal]
